FAERS Safety Report 10437532 (Version 2)
Quarter: 2014Q3

REPORT INFORMATION
  Report Type: Spontaneous
  Country: US (occurrence: US)
  Receive Date: 20140908
  Receipt Date: 20140908
  Transmission Date: 20150326
  Serious: No
  Sender: FDA-Public Use
  Company Number: US-BRISTOL-MYERS SQUIBB COMPANY-20396982

PATIENT
  Age: 15 Year
  Sex: Male

DRUGS (3)
  1. RISPERIDONE. [Concomitant]
     Active Substance: RISPERIDONE
     Dosage: 1DF=2 MG IN AM,4MG IN PM
     Dates: start: 201303
  2. ABILIFY [Suspect]
     Active Substance: ARIPIPRAZOLE
     Indication: AFFECTIVE DISORDER
     Route: 048
     Dates: start: 2006
  3. METHYLPHENIDATE [Concomitant]
     Active Substance: METHYLPHENIDATE
     Dosage: 1DF=20 MG OF METHYLPHENIDATE ER + 5MG OF IMMEDIATE RELEASE?10MG IMMED RELEASE AT PM
     Dates: start: 201203

REACTIONS (2)
  - Wrong technique in drug usage process [Unknown]
  - Off label use [Unknown]
